FAERS Safety Report 17141219 (Version 1)
Quarter: 2019Q4

REPORT INFORMATION
  Report Type: Spontaneous
  Country: FR (occurrence: FR)
  Receive Date: 20191211
  Receipt Date: 20191211
  Transmission Date: 20200122
  Serious: Yes (Other)
  Sender: FDA-Public Use
  Company Number: FR-BAUSCH-BL-2019-064412

PATIENT
  Age: 80 Year
  Sex: Male
  Weight: 57.7 kg

DRUGS (2)
  1. GENTAMICINE [Suspect]
     Active Substance: GENTAMICIN
     Indication: ENDOCARDITIS
     Route: 042
     Dates: start: 20190801, end: 20190815
  2. AMOXICILLINE [Suspect]
     Active Substance: AMOXICILLIN
     Indication: ENDOCARDITIS
     Route: 042
     Dates: start: 20190801, end: 20190817

REACTIONS (1)
  - Acute kidney injury [Recovered/Resolved]

NARRATIVE: CASE EVENT DATE: 20190817
